FAERS Safety Report 9380297 (Version 1)
Quarter: 2013Q3

REPORT INFORMATION
  Report Type: Spontaneous
  Country: IT (occurrence: IT)
  Receive Date: 20130702
  Receipt Date: 20130702
  Transmission Date: 20140515
  Serious: Yes (Hospitalization)
  Sender: FDA-Public Use
  Company Number: IT-BAYER-2013-079105

PATIENT
  Age: 87 Year
  Sex: Male

DRUGS (3)
  1. CARDIOASPIRIN [Suspect]
     Dosage: 100 MG, DAILY
     Route: 048
     Dates: start: 20110101, end: 20130619
  2. LOSARTAN POTASSIUM W/HYDROCHLOROTHIAZIDE [Concomitant]
     Indication: HYPERTENSION
     Dosage: UNK
     Route: 048
  3. AMARYL [Concomitant]
     Indication: DIABETES MELLITUS
     Dosage: 2 MG, DAILY
     Route: 048

REACTIONS (3)
  - Haematemesis [Recovered/Resolved]
  - Melaena [Recovered/Resolved]
  - Adverse drug reaction [Recovered/Resolved]
